FAERS Safety Report 10949834 (Version 1)
Quarter: 2015Q1

REPORT INFORMATION
  Report Type: Spontaneous
  Country: US (occurrence: None)
  Receive Date: 20150323
  Receipt Date: 20150323
  Transmission Date: 20150721
  Serious: Yes (Life-Threatening, Disabling, Other)
  Sender: FDA-Public Use
  Company Number: None

PATIENT
  Age: 17 Year
  Sex: Male
  Weight: 83.92 kg

DRUGS (7)
  1. DIPHENHYDRAMINE [Suspect]
     Active Substance: DIPHENHYDRAMINE
     Indication: DRUG ABUSE
  2. VITAMINE C [Concomitant]
  3. SEROQUEL [Concomitant]
     Active Substance: QUETIAPINE FUMARATE
  4. IRON [Concomitant]
     Active Substance: IRON
  5. ABILIFY [Concomitant]
     Active Substance: ARIPIPRAZOLE
  6. VITAMIN D3 [Concomitant]
     Active Substance: CHOLECALCIFEROL
  7. SODIUM VALPROATE [Concomitant]
     Active Substance: VALPROATE SODIUM

REACTIONS (10)
  - Drug abuse [None]
  - Vision blurred [None]
  - Hangover [None]
  - Hallucinations, mixed [None]
  - Somnambulism [None]
  - Intentional overdose [None]
  - Thirst [None]
  - Sleep talking [None]
  - Vertigo [None]
  - Toxicity to various agents [None]

NARRATIVE: CASE EVENT DATE: 20140930
